FAERS Safety Report 20128598 (Version 3)
Quarter: 2022Q1

REPORT INFORMATION
  Report Type: Spontaneous
  Country: US (occurrence: US)
  Receive Date: 20211130
  Receipt Date: 20220101
  Transmission Date: 20220424
  Serious: No
  Sender: FDA-Public Use
  Company Number: US-LUPIN PHARMACEUTICALS INC.-2021-23040

PATIENT
  Age: 48 Year
  Sex: Female
  Weight: 68.027 kg

DRUGS (4)
  1. TESTOSTERONE GEL 1.62% [Suspect]
     Active Substance: TESTOSTERONE
     Indication: Loss of libido
     Dosage: UNK, HALF A PUMP, WEEKLY
     Route: 065
     Dates: start: 20210407
  2. TESTOSTERONE GEL 1.62% [Suspect]
     Active Substance: TESTOSTERONE
     Dosage: UNK, HALF A PUMP FOR EVERY TWO WEEKS
     Route: 065
     Dates: start: 2021
  3. ESTROGENS [Concomitant]
     Active Substance: ESTROGENS
     Indication: Hormone level abnormal
     Dosage: UNK
     Route: 065
  4. PROGESTERONE [Concomitant]
     Active Substance: PROGESTERONE
     Indication: Hormone level abnormal
     Dosage: UNK
     Route: 065

REACTIONS (3)
  - Device delivery system issue [Unknown]
  - Drug dose omission by device [Unknown]
  - No adverse event [Unknown]

NARRATIVE: CASE EVENT DATE: 20211105
